FAERS Safety Report 6709936-X (Version None)
Quarter: 2010Q2

REPORT INFORMATION
  Report Type: 
  Country: None (occurrence: None)
  Receive Date: 20100503
  Receipt Date: 20100503
  Transmission Date: 20101027
  Serious: Yes (Hospitalization)
  Sender: FDA-Public Use
  Company Number: None

PATIENT
  Sex: Female
  Weight: 20.4119 kg

DRUGS (1)
  1. MOTRIN [Suspect]
     Indication: PYREXIA
     Dosage: TWO TEASPOONS EVERY 8 HOURS PO
     Route: 048
     Dates: start: 20100421, end: 20100427

REACTIONS (1)
  - HAEMATEMESIS [None]
